FAERS Safety Report 5745633-5 (Version None)
Quarter: 2008Q2

REPORT INFORMATION
  Report Type: 
  Country: None (occurrence: None)
  Receive Date: 20080521
  Receipt Date: 20080519
  Transmission Date: 20081010
  Serious: Yes (Hospitalization, Other)
  Sender: FDA-Public Use
  Company Number: PHEH2006US08725

PATIENT
  Age: 60 Year
  Sex: Female
  Weight: 81.632 kg

DRUGS (17)
  1. COMBIPATCH [Suspect]
     Indication: HORMONE REPLACEMENT THERAPY
     Dosage: 0.05/0.14 MG/DAY, UNK
     Route: 062
     Dates: start: 20010301, end: 20010801
  2. PREMARIN [Suspect]
     Indication: MENOPAUSE
     Dosage: 0.625 MG, UNK
     Route: 048
     Dates: start: 20000801, end: 20010101
  3. PREMPRO [Suspect]
     Indication: MENOPAUSE
     Dosage: 0.625/2.5 MG, UNK
     Route: 048
     Dates: start: 19970601, end: 19990401
  4. PREMPRO [Suspect]
     Dosage: 0.625/ 5 MG, UNK
     Route: 048
     Dates: start: 19990501, end: 20010301
  5. PREMPRO [Suspect]
     Dosage: 0.625/5 MG, UNK
     Dates: start: 20011001, end: 20020801
  6. ESTRADIOL [Suspect]
     Indication: MENOPAUSE
     Dosage: 1 MG, UNK
     Dates: start: 20010801, end: 20011001
  7. PREVACID [Concomitant]
     Indication: GASTROOESOPHAGEAL REFLUX DISEASE
     Dates: start: 20010601, end: 20020101
  8. NEXIUM [Concomitant]
     Indication: GASTROOESOPHAGEAL REFLUX DISEASE
  9. NASACORT AQ [Concomitant]
     Indication: HYPERSENSITIVITY
     Route: 045
  10. CLARITIN [Concomitant]
     Dates: start: 20010101
  11. SULINDAC [Concomitant]
     Indication: PAIN
     Route: 048
     Dates: start: 19990101, end: 20001101
  12. VIOXX [Concomitant]
     Indication: PAIN
     Dates: start: 20001101, end: 20020201
  13. CELEBREX [Concomitant]
     Indication: PAIN
     Dates: start: 20020201, end: 20041201
  14. DIOVAN HCT [Concomitant]
     Indication: HYPERTENSION
     Route: 048
     Dates: start: 20010401, end: 20040701
  15. ZOCOR [Concomitant]
     Indication: BLOOD CHOLESTEROL INCREASED
     Dates: start: 19991101, end: 20020201
  16. ZOCOR [Concomitant]
     Dates: start: 20060701, end: 20060101
  17. LIPITOR [Concomitant]
     Indication: BLOOD CHOLESTEROL INCREASED
     Dates: start: 20020301, end: 20040701

REACTIONS (41)
  - ANXIETY [None]
  - ARTHRITIS [None]
  - BIOPSY BREAST ABNORMAL [None]
  - BREAST CANCER [None]
  - BREAST MASS [None]
  - BUNDLE BRANCH BLOCK [None]
  - CARDIAC ENZYMES INCREASED [None]
  - CARDIAC FAILURE CONGESTIVE [None]
  - CARDIOMYOPATHY [None]
  - CHEMOTHERAPY [None]
  - CONTUSION [None]
  - CONVULSION [None]
  - CORONARY ARTERY DISEASE [None]
  - DEHYDRATION [None]
  - DEPRESSION [None]
  - DYSKINESIA [None]
  - DYSPNOEA [None]
  - EJECTION FRACTION DECREASED [None]
  - FALL [None]
  - FATIGUE [None]
  - GASTROENTERITIS [None]
  - HYPOKALAEMIA [None]
  - HYPOMAGNESAEMIA [None]
  - INTERVERTEBRAL DISC DISORDER [None]
  - LOOSE TOOTH [None]
  - LYMPHADENECTOMY [None]
  - LYMPHADENOPATHY [None]
  - MAMMOGRAM ABNORMAL [None]
  - MASTECTOMY [None]
  - MYOCARDIAL INFARCTION [None]
  - NIGHT SWEATS [None]
  - POSTMENOPAUSAL HAEMORRHAGE [None]
  - RADIOTHERAPY [None]
  - RENAL FAILURE [None]
  - STENT PLACEMENT [None]
  - TACHYCARDIA [None]
  - TOOTHACHE [None]
  - TREATMENT NONCOMPLIANCE [None]
  - TROPONIN INCREASED [None]
  - VENTRICULAR DYSFUNCTION [None]
  - WOUND [None]
